FAERS Safety Report 8840812 (Version 1)
Quarter: 2012Q4

REPORT INFORMATION
  Report Type: 
  Country: US (occurrence: US)
  Receive Date: 20121015
  Receipt Date: 20121015
  Transmission Date: 20130627
  Serious: Yes (Hospitalization)
  Sender: FDA-Public Use
  Company Number: US-ASTRAZENECA-2012SE76923

PATIENT
  Age: 27 Year
  Sex: Female
  Weight: 48.5 kg

DRUGS (20)
  1. QUETIAPINE FUMARATE [Suspect]
     Dosage: 400 MG, AT QPM
     Route: 048
  2. QUETIAPINE FUMARATE [Suspect]
     Route: 048
  3. HUMIRA [Suspect]
     Indication: CROHN^S DISEASE
     Dosage: 40 MG/ 0.8 ML, 40 MG 1 IN 2 WEEK
     Route: 065
     Dates: start: 200903
  4. HUMIRA [Suspect]
     Indication: CROHN^S DISEASE
     Dosage: 40 MG/ 0.8 ML
     Route: 065
     Dates: start: 201005
  5. KLONOPIN [Suspect]
     Indication: ANXIETY
     Dosage: 2.5 MG, QPM
     Route: 065
  6. KLONOPIN [Suspect]
     Indication: BIPOLAR DISORDER
     Dosage: 2.5 MG, QPM
     Route: 065
  7. KLONOPIN [Suspect]
     Indication: ANXIETY
     Route: 065
  8. KLONOPIN [Suspect]
     Indication: BIPOLAR DISORDER
     Route: 065
  9. KLONOPIN [Suspect]
     Indication: ANXIETY
     Route: 065
  10. KLONOPIN [Suspect]
     Indication: BIPOLAR DISORDER
     Route: 065
  11. DEPAKOTE ER [Suspect]
     Route: 065
  12. MESALAZINE [Concomitant]
     Indication: CROHN^S DISEASE
  13. MESALAZINE [Concomitant]
     Indication: CROHN^S DISEASE
     Dosage: 1000 MG QPM
     Route: 054
  14. DEXLANSOPRAZOLE [Concomitant]
     Indication: GASTROOESOPHAGEAL REFLUX DISEASE
  15. LISDEXAMFETAMINE MESILATE [Concomitant]
     Indication: ATTENTION DEFICIT/HYPERACTIVITY DISORDER
  16. DOCUSATE SODIUM [Concomitant]
  17. PRAMIPEXOLE DIHYDROCHLORIDE [Concomitant]
     Indication: PERIODIC LIMB MOVEMENT DISORDER
  18. VFL [Concomitant]
     Indication: CROHN^S DISEASE
     Dosage: 3 PACKETS DAILY
  19. VFL [Concomitant]
     Indication: IRRITABLE BOWEL SYNDROME
     Dosage: 3 PACKETS DAILY
  20. CEFIXIME [Concomitant]
     Dosage: 5 - 10 MG, AS REQUIRED

REACTIONS (13)
  - Mobility decreased [Recovered/Resolved]
  - Compartment syndrome [Unknown]
  - Rhabdomyolysis [Unknown]
  - Peroneal nerve palsy [Unknown]
  - Nerve compression [Unknown]
  - Rectal ulcer [Unknown]
  - Tendonitis [Recovered/Resolved]
  - Malaise [Unknown]
  - Nausea [Unknown]
  - Dehydration [Unknown]
  - Abdominal pain upper [Unknown]
  - Incorrect dose administered [Unknown]
  - Intentional drug misuse [Unknown]
